FAERS Safety Report 9813376 (Version 1)
Quarter: 2014Q1

REPORT INFORMATION
  Report Type: Spontaneous
  Country: IT (occurrence: None)
  Receive Date: 20140109
  Receipt Date: 20140109
  Transmission Date: 20141002
  Serious: Yes (Death)
  Sender: FDA-Public Use
  Company Number: FK201305606

PATIENT
  Age: 23 Year
  Sex: Female

DRUGS (6)
  1. MORPHINE {MANUFACTURER UNKNOWN} {MORPHINE} {MORPHINE} [Suspect]
     Indication: SUBSTANCE USE
     Dosage: UNKNOWN, UNKNOWN, UNKOWN
  2. CAFFEINE CITRATE (MANUFACTURER UNKNOWN) (CAFFEINE CITRATE) (CAFFEINE CITRATE) [Suspect]
     Indication: SUBSTANCE USE
     Dosage: UNKNOWN, UNKNOWN{ UNKNOWN
  3. CODEINE {CODEINE} [Suspect]
     Indication: SUBSTANCE USE
  4. DEXTROMETHORPHAN {DEXTROMETHORPHAN} [Suspect]
     Indication: SUBSTANCE USE
  5. 6-MONOACETYLMORPHINE [Suspect]
     Indication: SUBSTANCE USE
  6. HEROIN (DIAMORPHINE) (DIAMORPHINE) [Suspect]
     Indication: SUBSTANCE USE

REACTIONS (2)
  - Overdose [None]
  - Thermal burn [None]
